FAERS Safety Report 5263873-9 (Version None)
Quarter: 2007Q1

REPORT INFORMATION
  Report Type: 
  Country: None (occurrence: None)
  Receive Date: 20061213
  Receipt Date: 20050317
  Transmission Date: 20070707
  Serious: Yes (Other)
  Sender: FDA-Public Use
  Company Number: 2005UW04238

PATIENT
  Age: 87 Year
  Sex: Female

DRUGS (8)
  1. IRESSA [Suspect]
     Indication: LUNG NEOPLASM MALIGNANT
     Dosage: 250 MG PO
     Route: 048
     Dates: start: 20041201
  2. ALBUTEROL [Concomitant]
  3. PRILOSEC [Concomitant]
  4. REGLAN [Concomitant]
  5. IMDUR [Concomitant]
  6. XANAX [Concomitant]
  7. PROCARDIA [Concomitant]
  8. LOPRESSOR [Concomitant]

REACTIONS (3)
  - ALOPECIA [None]
  - DIARRHOEA [None]
  - REFLUX GASTRITIS [None]
